FAERS Safety Report 8506055 (Version 3)
Quarter: 2013Q1

REPORT INFORMATION
  Report Type: Report from Study
  Country: DE (occurrence: DE)
  Receive Date: 20120412
  Receipt Date: 20130326
  Transmission Date: 20140127
  Serious: Yes (Death, Hospitalization)
  Sender: FDA-Public Use
  Company Number: DE-ROCHE-CID000000001986651

PATIENT
  Age: 78 Year
  Sex: Male
  Weight: 62.4 kg

DRUGS (11)
  1. BEVACIZUMAB [Suspect]
     Indication: NON-SMALL CELL LUNG CANCER
     Dosage: LAST DOSE PRIOR TO SAE 15 MAR 2012
     Route: 042
     Dates: start: 20111223
  2. PEMETREXED [Suspect]
     Indication: NON-SMALL CELL LUNG CANCER
     Dosage: LAST DOSE PRIOR TO SAE 15 MAR 2012
     Route: 042
     Dates: start: 20111223, end: 20120329
  3. CARBOPLATIN [Suspect]
     Indication: NON-SMALL CELL LUNG CANCER
     Dosage: LAST DOSE PRIOR TO SAE 22 FEB 2012 DOSAGE: AUC 5
     Route: 065
     Dates: start: 20111223
  4. ASS [Concomitant]
     Route: 065
     Dates: start: 2011
  5. LOCOL [Concomitant]
     Route: 065
     Dates: end: 20120326
  6. CALCIMAGON [Concomitant]
     Route: 065
     Dates: end: 20120326
  7. FOLCUR [Concomitant]
     Route: 065
     Dates: start: 201112
  8. VITAMIN B12 [Concomitant]
     Route: 065
     Dates: start: 201112
  9. BELOC-ZOK [Concomitant]
     Route: 065
     Dates: end: 20120326
  10. VERTIGO VOMEX [Concomitant]
     Route: 065
     Dates: end: 20120326
  11. ALFUZOSIN [Concomitant]
     Route: 065
     Dates: end: 20120326

REACTIONS (6)
  - Pancytopenia [Fatal]
  - Asthenia [Fatal]
  - Dehydration [Fatal]
  - General physical health deterioration [Not Recovered/Not Resolved]
  - Thrombocytopenia [Not Recovered/Not Resolved]
  - Neutropenia [Not Recovered/Not Resolved]
